FAERS Safety Report 9166215 (Version 1)
Quarter: 2013Q1

REPORT INFORMATION
  Report Type: Spontaneous
  Country: GB (occurrence: None)
  Receive Date: 20130301
  Receipt Date: 20130301
  Transmission Date: 20140127
  Serious: Yes (Other)
  Sender: FDA-Public Use
  Company Number: FK201300532

PATIENT
  Age: 57 Year
  Sex: Female
  Weight: 62.1 kg

DRUGS (15)
  1. ONDANSETRON [Suspect]
     Indication: ANTIEMETIC SUPPORTIVE CARE
     Route: 042
     Dates: start: 20121101, end: 20121101
  2. ONDANSETRON [Suspect]
     Indication: INTRAOPERATIVE CARE
     Route: 042
     Dates: start: 20121101, end: 20121101
  3. FLUOXETINE (FLUOXETINE) [Suspect]
     Indication: DEPRESSION
     Route: 048
  4. ATORVASTATIN (ATORVASTATIN) [Concomitant]
  5. RANITIDINE (RANITIDINE) [Concomitant]
  6. ATRACURIUM [Concomitant]
  7. DEXAMETHASONE (DEXAMETHASONE) [Concomitant]
  8. EPHEDRINE [Concomitant]
  9. FENTANYL (FENTANYL) [Concomitant]
  10. GENTAMICIN [Concomitant]
  11. MANEVAC [Concomitant]
  12. METRONIDAZOLE (METRONIDAZOLE) [Concomitant]
  13. NEOSTIGMINE [Concomitant]
  14. PROPOFOL (PROPOFOL) [Concomitant]
  15. SEVOFLURANE [Concomitant]

REACTIONS (6)
  - Coma scale abnormal [None]
  - Procedural hypertension [None]
  - Serotonin syndrome [None]
  - Tremor [None]
  - Pyrexia [None]
  - Tachycardia [None]
